FAERS Safety Report 16707509 (Version 1)
Quarter: 2019Q3

REPORT INFORMATION
  Report Type: Spontaneous
  Country: IT (occurrence: IT)
  Receive Date: 20190815
  Receipt Date: 20190815
  Transmission Date: 20191004
  Serious: Yes (Other)
  Sender: FDA-Public Use
  Company Number: IT-BAUSCH-BL-2019-022643

PATIENT
  Age: 39 Year
  Sex: Female
  Weight: 65 kg

DRUGS (1)
  1. VIRGAN [Suspect]
     Active Substance: GANCICLOVIR
     Indication: KERATITIS VIRAL
     Route: 057
     Dates: start: 20190125, end: 20190412

REACTIONS (1)
  - Corneal lesion [Recovered/Resolved with Sequelae]

NARRATIVE: CASE EVENT DATE: 20190131
